FAERS Safety Report 6492861-X (Version None)
Quarter: 2009Q4

REPORT INFORMATION
  Report Type: 
  Country: None (occurrence: None)
  Receive Date: 20091211
  Receipt Date: 20091211
  Transmission Date: 20100525
  Serious: Yes (Other)
  Sender: FDA-Public Use
  Company Number: None

PATIENT
  Age: 44 Year
  Sex: Female
  Weight: 74.8435 kg

DRUGS (2)
  1. CYMBALTA [Suspect]
     Indication: FIBROMYALGIA
     Dosage: TAKE 1 CAPSULE ONCE DAILY PO
     Route: 048
     Dates: start: 20091019, end: 20091203
  2. CYMBALTA [Suspect]
     Indication: FIBROMYALGIA
     Dosage: TAKE ONE CAPSULE ONCE DAILY PO
     Route: 048
     Dates: start: 20091110, end: 20091203

REACTIONS (4)
  - MOVEMENT DISORDER [None]
  - MUSCLE SPASMS [None]
  - PAIN [None]
  - TOOTH FRACTURE [None]
